FAERS Safety Report 8903595 (Version 5)
Quarter: 2014Q1

REPORT INFORMATION
  Report Type: Spontaneous
  Country: US (occurrence: US)
  Receive Date: 20121113
  Receipt Date: 20140325
  Transmission Date: 20141002
  Serious: Yes (Hospitalization, Other)
  Sender: FDA-Public Use
  Company Number: US-009507513-1211USA003579

PATIENT
  Sex: Female

DRUGS (7)
  1. FOSAMAX [Suspect]
     Indication: OSTEOPOROSIS
     Dosage: 70 MG, UNK
     Route: 048
     Dates: start: 199808, end: 20100713
  2. ALENDRONATE SODIUM [Suspect]
     Indication: OSTEOPOROSIS
     Dosage: 70 MG, UNK
     Route: 048
     Dates: start: 20080216
  3. CHONDROITIN SULFATE SODIUM (+) GLUCOSAMINE SULFATE [Concomitant]
  4. CALCIUM (UNSPECIFIED) [Concomitant]
     Dosage: 500 MG, QD
  5. ASCORBIC ACID [Concomitant]
     Dosage: 500 MG, TID
  6. FERROUS SULFATE [Concomitant]
     Dosage: 325 MG, TID
  7. VITAMINS (UNSPECIFIED) [Concomitant]

REACTIONS (17)
  - Femur fracture [Unknown]
  - Open reduction of fracture [Unknown]
  - Type 2 diabetes mellitus [Unknown]
  - Chronic obstructive pulmonary disease [Unknown]
  - Hypothyroidism [Unknown]
  - Deep vein thrombosis [Unknown]
  - Skin cancer [Unknown]
  - Hysterectomy [Unknown]
  - Appendicectomy [Unknown]
  - Cardiac disorder [Unknown]
  - Catheterisation cardiac [Unknown]
  - Urinary tract infection [Unknown]
  - Tachyarrhythmia [Unknown]
  - Myocardial infarction [Unknown]
  - Fall [Unknown]
  - Balance disorder [Unknown]
  - Gastroenteritis [Unknown]
